FAERS Safety Report 15657404 (Version 2)
Quarter: 2018Q4

REPORT INFORMATION
  Report Type: Report from Study
  Country: ZA (occurrence: ZA)
  Receive Date: 20181126
  Receipt Date: 20181219
  Transmission Date: 20190205
  Serious: Yes (Life-Threatening)
  Sender: FDA-Public Use
  Company Number: ZA-SAKK-2018SA318155AA

PATIENT
  Age: 54 Year
  Sex: Female

DRUGS (8)
  1. NO STUDY DRUG GIVEN [Suspect]
     Active Substance: UNSPECIFIED INGREDIENT
     Dosage: UNK UNK, UNK
  2. GLIMEPIRIDE. [Concomitant]
     Active Substance: GLIMEPIRIDE
     Dosage: 2 MG, BB
     Dates: start: 20180625
  3. LOSARTAN CO UNICORN [Concomitant]
     Dosage: 50 MG, QD
     Dates: start: 20120830
  4. ADCO-SIMVASTATIN [Concomitant]
     Active Substance: SIMVASTATIN
     Dosage: 10 MG, QD
     Dates: start: 20140830
  5. TOUJEO [Suspect]
     Active Substance: INSULIN GLARGINE
     Dosage: 64 U, QD
     Dates: start: 20180625
  6. METFORMIN [Concomitant]
     Active Substance: METFORMIN HYDROCHLORIDE
     Dosage: 1000 MG, AL-AS-AB
     Dates: start: 20180625
  7. TOUJEO [Suspect]
     Active Substance: INSULIN GLARGINE
     Dosage: 68U, BT
     Dates: start: 20180625
  8. ECOTRIN [Concomitant]
     Active Substance: ASPIRIN
     Dosage: 81 MG, QD
     Dates: start: 20120830

REACTIONS (4)
  - Pain [Not Recovered/Not Resolved]
  - Musculoskeletal stiffness [Not Recovered/Not Resolved]
  - Blood glucose increased [Not Recovered/Not Resolved]
  - Peripheral swelling [Not Recovered/Not Resolved]

NARRATIVE: CASE EVENT DATE: 20181101
